FAERS Safety Report 8996885 (Version 1)
Quarter: 2012Q4

REPORT INFORMATION
  Report Type: Spontaneous
  Country: DE (occurrence: None)
  Receive Date: 20121221
  Receipt Date: 20121221
  Transmission Date: 20130627
  Serious: Yes (Hospitalization)
  Sender: FDA-Public Use
  Company Number: PNIS20120039

PATIENT
  Age: 22 Year
  Sex: Male

DRUGS (2)
  1. PREDNISOLONE ORAL SOLUTION (PREDNISOLONE) (UNKNOWN) [Suspect]
     Dates: start: 2004
  2. PREDNISOLONE ORAL SOLUTION (PREDNISOLONE) (UNKNOWN) [Suspect]
     Dates: start: 2004

REACTIONS (7)
  - Benign neoplasm of spinal cord [None]
  - Paraparesis [None]
  - Spastic paraplegia [None]
  - Incontinence [None]
  - Cardiac failure [None]
  - Osteoporosis [None]
  - Spinal decompression [None]
